FAERS Safety Report 6098513-2 (Version None)
Quarter: 2009Q1

REPORT INFORMATION
  Report Type: 
  Country: None (occurrence: None)
  Receive Date: 20090302
  Receipt Date: 20090219
  Transmission Date: 20090719
  Serious: Yes (Other)
  Sender: FDA-Public Use
  Company Number: CA-JNJFOC-20090205404

PATIENT
  Sex: Female
  Weight: 64.2 kg

DRUGS (1)
  1. REMICADE [Suspect]
     Indication: RHEUMATOID ARTHRITIS
     Dosage: 45 TOTAL INFUSIONS
     Route: 042

REACTIONS (2)
  - ANKLE FRACTURE [None]
  - FALL [None]
